FAERS Safety Report 4612570-9 (Version None)
Quarter: 2005Q1

REPORT INFORMATION
  Report Type: 
  Country: None (occurrence: None)
  Receive Date: 20050316
  Receipt Date: 20050316
  Transmission Date: 20050727
  Serious: Yes (Other)
  Sender: FDA-Public Use
  Company Number: None

PATIENT
  Age: 62 Year
  Sex: Male
  Weight: 59.4212 kg

DRUGS (2)
  1. COUMADIN [Suspect]
     Indication: ATRIAL FIBRILLATION
     Dosage: DAILY ORALLY 5MG EVERY DAY WITH 7-5 MG
     Route: 048
  2. COUMADIN [Suspect]
     Indication: CARDIOMYOPATHY
     Dosage: DAILY ORALLY 5MG EVERY DAY WITH 7-5 MG
     Route: 048

REACTIONS (1)
  - PHARMACEUTICAL PRODUCT COMPLAINT [None]
